FAERS Safety Report 7713258-8 (Version None)
Quarter: 2011Q3

REPORT INFORMATION
  Report Type: 
  Country: None (occurrence: None)
  Receive Date: 20110826
  Receipt Date: 20110525
  Transmission Date: 20111222
  Serious: Yes (Disabling, Other)
  Sender: FDA-Public Use
  Company Number: DK-BAYER-2011-047774

PATIENT
  Age: 45 Year
  Sex: Male

DRUGS (11)
  1. ATACAND HCT [Concomitant]
  2. PLENDIL [Concomitant]
  3. GADOLINIUM IN UNSPECIFIED DRUG [Suspect]
     Indication: SCAN WITH CONTRAST
     Dosage: UNK
     Dates: start: 19970107
  4. ACTRAPID [Concomitant]
  5. FURIX RETARD [Concomitant]
  6. SIMAVASTATIN [Concomitant]
  7. INSULATARD NPH HUMAN [Concomitant]
  8. MAGNYL [Concomitant]
  9. ASPIRIN [Concomitant]
  10. DOTAREM [Suspect]
     Indication: SCAN WITH CONTRAST
     Dosage: 279.3 MG/ML, 30 ML
     Route: 042
     Dates: start: 20060829
  11. PHOS-EX [Concomitant]

REACTIONS (17)
  - MUSCULAR WEAKNESS [None]
  - INSOMNIA [None]
  - HYPOAESTHESIA [None]
  - LIMB INJURY [None]
  - WALKING DISTANCE TEST ABNORMAL [None]
  - PRURITUS [None]
  - MUSCULOSKELETAL STIFFNESS [None]
  - SKIN INDURATION [None]
  - GENERAL PHYSICAL HEALTH DETERIORATION [None]
  - RESTLESS LEGS SYNDROME [None]
  - OEDEMA PERIPHERAL [None]
  - DIPLEGIA [None]
  - MUSCLE SPASMS [None]
  - PAIN IN EXTREMITY [None]
  - ANXIETY [None]
  - POLYNEUROPATHY [None]
  - NEPHROGENIC SYSTEMIC FIBROSIS [None]
